FAERS Safety Report 6163213-7 (Version None)
Quarter: 2009Q2

REPORT INFORMATION
  Report Type: 
  Country: None (occurrence: None)
  Receive Date: 20090420
  Receipt Date: 20090413
  Transmission Date: 20091009
  Serious: Yes (Other)
  Sender: FDA-Public Use
  Company Number: 2009-0008

PATIENT

DRUGS (1)
  1. DITROPAN [Suspect]
     Indication: INCONTINENCE

REACTIONS (1)
  - COGNITIVE DISORDER [None]
